FAERS Safety Report 23556677 (Version 2)
Quarter: 2024Q1

REPORT INFORMATION
  Report Type: Spontaneous
  Country: US (occurrence: US)
  Receive Date: 20240223
  Receipt Date: 20240228
  Transmission Date: 20240410
  Serious: No
  Sender: FDA-Public Use
  Company Number: US-AMGEN-USASP2024035861

PATIENT
  Sex: Male

DRUGS (1)
  1. SENSIPAR [Suspect]
     Active Substance: CINACALCET HYDROCHLORIDE
     Indication: Chronic kidney disease
     Dosage: 60 MILLIGRAM, QD
     Route: 048

REACTIONS (2)
  - Therapy interrupted [Unknown]
  - Blood parathyroid hormone abnormal [Unknown]

NARRATIVE: CASE EVENT DATE: 20240201
